FAERS Safety Report 4910127-3 (Version None)
Quarter: 2006Q1

REPORT INFORMATION
  Report Type: 
  Country: None (occurrence: None)
  Receive Date: 20060209
  Receipt Date: 20060127
  Transmission Date: 20060701
  Serious: Yes (Death)
  Sender: FDA-Public Use
  Company Number: L05-USA-03935-51

PATIENT
  Age: 62 Year
  Sex: Female

DRUGS (4)
  1. ISOSORBIDE DINITRATE [Suspect]
  2. CELEXA [Suspect]
  3. NEURONTIN [Suspect]
  4. ETHANOL [Suspect]

REACTIONS (8)
  - ASPIRATION [None]
  - BLOOD ETHANOL INCREASED [None]
  - COMPLETED SUICIDE [None]
  - HYPOTENSION [None]
  - INTESTINAL ISCHAEMIA [None]
  - LETHARGY [None]
  - SEPSIS [None]
  - VOMITING [None]
